FAERS Safety Report 6636528-3 (Version None)
Quarter: 2010Q1

REPORT INFORMATION
  Report Type: 
  Country: None (occurrence: None)
  Receive Date: 20100310
  Receipt Date: 20100225
  Transmission Date: 20100710
  Serious: Yes (Hospitalization)
  Sender: FDA-Public Use
  Company Number: 060006L10JPN

PATIENT
  Age: 30 Year
  Sex: Female

DRUGS (3)
  1. MENOTROPINS [Suspect]
     Dosage: 150 IU, 3 IN
     Route: 015
  2. CLOMID [Suspect]
  3. PREDNISOLONE [Concomitant]

REACTIONS (18)
  - ABDOMINAL DISTENSION [None]
  - ABDOMINAL PAIN LOWER [None]
  - ABORTION INCOMPLETE [None]
  - ALANINE AMINOTRANSFERASE INCREASED [None]
  - ASCITES [None]
  - ASPARTATE AMINOTRANSFERASE INCREASED [None]
  - BLOOD ALBUMIN DECREASED [None]
  - DISCOMFORT [None]
  - DRUG EXPOSURE DURING PREGNANCY [None]
  - ECTOPIC PREGNANCY [None]
  - GENITAL HAEMORRHAGE [None]
  - HAEMATOMA [None]
  - HAEMOCONCENTRATION [None]
  - HETEROTOPIC PREGNANCY [None]
  - NAUSEA [None]
  - OVARIAN HYPERSTIMULATION SYNDROME [None]
  - RESPIRATORY DISORDER [None]
  - URINE OUTPUT DECREASED [None]
